FAERS Safety Report 6600717-4 (Version None)
Quarter: 2010Q1

REPORT INFORMATION
  Report Type: 
  Country: None (occurrence: None)
  Receive Date: 20100223
  Receipt Date: 20100223
  Transmission Date: 20100710
  Serious: Yes (Death)
  Sender: FDA-Public Use
  Company Number: None

PATIENT
  Age: 72 Year
  Sex: Female
  Weight: 59.8748 kg

DRUGS (5)
  1. FOSAMAX [Suspect]
  2. ATENOLOL [Concomitant]
  3. SYNTHROID [Concomitant]
  4. NORVASC [Concomitant]
  5. TRIAMTERENE AND HYDROCHLOROTHIAZIDE [Concomitant]

REACTIONS (6)
  - COUGH [None]
  - DEHYDRATION [None]
  - DYSPEPSIA [None]
  - GASTRIC CANCER [None]
  - HYPOKALAEMIA [None]
  - METASTATIC NEOPLASM [None]
